FAERS Safety Report 7214926-7 (Version None)
Quarter: 2011Q1

REPORT INFORMATION
  Report Type: 
  Country: None (occurrence: None)
  Receive Date: 20110104
  Receipt Date: 20110104
  Transmission Date: 20110831
  Serious: Yes (Other)
  Sender: FDA-Public Use
  Company Number: None

PATIENT
  Age: 52 Year
  Sex: Female
  Weight: 68.0396 kg

DRUGS (5)
  1. EMEND [Concomitant]
  2. ZOFRAN [Concomitant]
  3. DECADRON [Concomitant]
  4. ADRIAMYCIN PFS [Suspect]
     Indication: BREAST CANCER
     Dosage: 110MG EVERY TWO WEEKS INTRACARDIAC
     Route: 016
     Dates: start: 20101021, end: 20101221
  5. CYTOXAN [Suspect]
     Indication: BREAST CANCER
     Dosage: 1100MG EVERY TWO WEEKS INTRACARDIAC
     Route: 016
     Dates: start: 20101021, end: 20101221

REACTIONS (2)
  - TREMOR [None]
  - DYSPNOEA [None]
